FAERS Safety Report 4274143-X (Version None)
Quarter: 2004Q1

REPORT INFORMATION
  Report Type: 
  Country: None (occurrence: None)
  Receive Date: 20040115
  Receipt Date: 20040107
  Transmission Date: 20041129
  Serious: Yes (Hospitalization, Other)
  Sender: FDA-Public Use
  Company Number: 2004001534

PATIENT
  Sex: Male

DRUGS (5)
  1. LIPITOR [Suspect]
     Indication: ILL-DEFINED DISORDER
     Dosage: 40 MG (DAILY), NEARLY FIVE YEARS
  2. DRUG USED IN DIABETES [Concomitant]
  3. CARDIAC THERAPY [Concomitant]
  4. ACETYLSALICYLIC ACID SRT [Concomitant]
  5. PANTOPRAZOLE SODIUM (PANTOPRAZOLE SODIUM) [Concomitant]

REACTIONS (2)
  - BILIARY COLIC [None]
  - CHOLELITHIASIS [None]
